FAERS Safety Report 15512322 (Version 1)
Quarter: 2018Q4

REPORT INFORMATION
  Report Type: Spontaneous
  Country: US (occurrence: US)
  Receive Date: 20181016
  Receipt Date: 20181016
  Transmission Date: 20190205
  Serious: No
  Sender: FDA-Public Use
  Company Number: US-AMGEN-USASP2018084482

PATIENT
  Age: 53 Year
  Sex: Female
  Weight: 122.9 kg

DRUGS (5)
  1. LEUCOVORIN. [Concomitant]
     Active Substance: LEUCOVORIN
     Indication: GASTRIC CANCER
     Dosage: UNK
     Dates: start: 20180618
  2. FLUOROURACIL. [Concomitant]
     Active Substance: FLUOROURACIL
     Indication: GASTRIC CANCER
     Dosage: UNK
     Dates: start: 20180618
  3. OXALIPLATIN. [Concomitant]
     Active Substance: OXALIPLATIN
     Indication: GASTRIC CANCER
     Dosage: UNK
     Dates: start: 20180618
  4. NEULASTA [Suspect]
     Active Substance: PEGFILGRASTIM
     Indication: NEUTROPENIA
     Dosage: 6 MG, UNK
     Route: 065
     Dates: start: 20180618
  5. DOCETAXEL. [Concomitant]
     Active Substance: DOCETAXEL
     Indication: GASTRIC CANCER
     Dosage: UNK
     Dates: start: 20180618

REACTIONS (1)
  - Accidental exposure to product [Unknown]

NARRATIVE: CASE EVENT DATE: 20180619
